FAERS Safety Report 23162660 (Version 1)
Quarter: 2023Q4

REPORT INFORMATION
  Report Type: Spontaneous
  Country: DE (occurrence: DE)
  Receive Date: 20231109
  Receipt Date: 20231109
  Transmission Date: 20240110
  Serious: Yes (Other)
  Sender: FDA-Public Use
  Company Number: DE-ORGANON-O2310DEU002965

PATIENT
  Sex: Female

DRUGS (7)
  1. LOSARTAN [Suspect]
     Active Substance: LOSARTAN
     Indication: Product used for unknown indication
     Dosage: 2 DOSAGE FORM, ONCE A DAY, ONE TABLET IN THE MORNING AND ONE IN THE EVENING (STRENGTH: 25 (UNITS UNS
     Route: 048
  2. TIBOLONE [Suspect]
     Active Substance: TIBOLONE
     Indication: Product used for unknown indication
     Dosage: UNK
     Route: 048
     Dates: start: 2013
  3. TIBOLONE [Suspect]
     Active Substance: TIBOLONE
     Dosage: UNK
     Route: 048
     Dates: end: 20230922
  4. ASPIRIN [Suspect]
     Active Substance: ASPIRIN
     Indication: Anticoagulant therapy
     Dosage: UNK, IN THE MORNING (STRENGTH: 100 (UNITS UNSPECIFIED))
     Route: 048
  5. DIMETHICONE\PANCREATIN [Suspect]
     Active Substance: DIMETHICONE\PANCRELIPASE
     Indication: Dyspepsia
     Dosage: UNK, TWICE IN THE EVENING
     Route: 065
  6. BISOPROLOL FUMARATE [Suspect]
     Active Substance: BISOPROLOL FUMARATE
     Indication: Product used for unknown indication
     Dosage: 1 DOSAGE FORM, ONCE A DAY, ONE IN THE EVENING
     Route: 065
  7. DULCOLAX (BISACODYL) [Suspect]
     Active Substance: BISACODYL
     Indication: Dyspepsia
     Dosage: UNK, 2X IN THE EVENING
     Route: 065

REACTIONS (2)
  - Dementia [Not Recovered/Not Resolved]
  - Hot flush [Recovered/Resolved]

NARRATIVE: CASE EVENT DATE: 20230101
